FAERS Safety Report 24445319 (Version 2)
Quarter: 2025Q2

REPORT INFORMATION
  Report Type: Report from Study
  Country: CA (occurrence: CA)
  Receive Date: 20241016
  Receipt Date: 20250609
  Transmission Date: 20250717
  Serious: Yes (Other)
  Sender: TAKEDA
  Company Number: CA-TAKEDA-2024TUS101001

PATIENT
  Sex: Male

DRUGS (7)
  1. VEDOLIZUMAB [Suspect]
     Active Substance: VEDOLIZUMAB
     Indication: Colitis ulcerative
  2. VEDOLIZUMAB [Suspect]
     Active Substance: VEDOLIZUMAB
     Indication: Colitis ulcerative
     Dosage: 108 MILLIGRAM, Q2WEEKS
  3. Salofalk [Concomitant]
  4. BUDESONIDE [Concomitant]
     Active Substance: BUDESONIDE
  5. IRON [Concomitant]
     Active Substance: IRON
     Indication: Supplementation therapy
  6. ENTOCORT [Concomitant]
     Active Substance: BUDESONIDE
  7. Cortiment [Concomitant]

REACTIONS (2)
  - Haematochezia [Unknown]
  - Frequent bowel movements [Unknown]
